FAERS Safety Report 7731785-4 (Version None)
Quarter: 2011Q3

REPORT INFORMATION
  Report Type: 
  Country: None (occurrence: None)
  Receive Date: 20110906
  Receipt Date: 20110831
  Transmission Date: 20111222
  Serious: Yes (Hospitalization)
  Sender: FDA-Public Use
  Company Number: PHEH2011US01469

PATIENT
  Sex: Female
  Weight: 97 kg

DRUGS (12)
  1. VISTARIL [Concomitant]
     Dosage: 25 MG, QID
     Route: 048
  2. METHADONE HCL [Concomitant]
     Dosage: 5 MG, BID
     Route: 048
  3. OMEPRAZOLE [Concomitant]
     Dosage: 20 MG, QD
     Route: 048
  4. OXYCODONE HCL [Concomitant]
     Dosage: 5 MG, UNK
  5. SORAFENIB [Suspect]
     Indication: BILE DUCT CANCER
     Dosage: 200 MG, BID
     Route: 048
     Dates: start: 20110615, end: 20110726
  6. TRENTAL [Concomitant]
     Dosage: 400 MG, TID
  7. LORTAB [Concomitant]
     Dosage: 1 DF, PRN
     Route: 048
  8. LOVENOX [Concomitant]
     Dosage: 100 MG, Q12H
     Route: 058
  9. AFINITOR [Suspect]
     Dosage: 5 MG, QD
     Route: 048
     Dates: start: 20110608, end: 20110726
  10. COMPAZINE [Concomitant]
     Dosage: 1 DF, PRN
  11. EFFEXOR [Concomitant]
     Dosage: 75 MG, BID
  12. LISINOPRIL [Concomitant]
     Dosage: 20 MG, QD
     Route: 048

REACTIONS (11)
  - DYSPNOEA EXERTIONAL [None]
  - CONFUSIONAL STATE [None]
  - NIGHT SWEATS [None]
  - BLOOD CULTURE POSITIVE [None]
  - DEHYDRATION [None]
  - BLOOD CREATININE INCREASED [None]
  - MALAISE [None]
  - ASTHENIA [None]
  - FEELING ABNORMAL [None]
  - FATIGUE [None]
  - BLOOD UREA INCREASED [None]
